FAERS Safety Report 8922563 (Version 1)
Quarter: 2012Q4

REPORT INFORMATION
  Report Type: 
  Country: US (occurrence: US)
  Receive Date: 20121126
  Receipt Date: 20121126
  Transmission Date: 20130627
  Serious: Yes (Hospitalization, Other)
  Sender: FDA-Public Use
  Company Number: US-ASTRAZENECA-2012SE87205

PATIENT
  Age: 656 Month
  Sex: Female

DRUGS (16)
  1. SEROQUEL [Suspect]
     Route: 048
     Dates: start: 2003
  2. SEROQUEL [Suspect]
     Dosage: 200 TO 400 MG
     Route: 048
     Dates: start: 20090114
  3. LISINOPRIL [Suspect]
     Route: 048
     Dates: start: 20061005
  4. CLONAZEPAM [Concomitant]
     Dosage: 0.5 TO 1 MG
     Dates: start: 20080514
  5. PANTOPRAZOLE [Concomitant]
     Dates: start: 20081218
  6. DIAZEPAM [Concomitant]
     Dates: start: 20090120
  7. LAMOTRIGINE [Concomitant]
     Dosage: 100 TO 200 MG
     Dates: start: 20090912
  8. TRAMADOL HCL [Concomitant]
     Dates: start: 20100321
  9. MIRTAZAPINE [Concomitant]
     Dates: start: 20100521
  10. LEVOTHYROXINE [Concomitant]
     Dosage: 50 TO 75 MCG
     Dates: start: 20060913
  11. CYCLOBENZAPRINE [Concomitant]
     Dates: start: 20100602
  12. METHYLPREDNISOLONE [Concomitant]
     Dates: start: 20101105
  13. FERROUS SULFATE [Concomitant]
     Dates: start: 20061005
  14. PROPOXY N/APAP [Concomitant]
     Dosage: 100-650 MG
     Dates: start: 20061005
  15. LORAZEPAM [Concomitant]
     Dates: start: 20070605
  16. HYDROCODONE/APAP [Concomitant]
     Dosage: 7.5-650
     Dates: start: 20080708

REACTIONS (22)
  - Suicidal ideation [Unknown]
  - Homicidal ideation [Unknown]
  - Anxiety [Unknown]
  - Depression [Unknown]
  - Hypertension [Unknown]
  - Hypothyroidism [Unknown]
  - Amnesia [Unknown]
  - Confusional state [Unknown]
  - Arthritis [Unknown]
  - Back pain [Unknown]
  - Insomnia [Unknown]
  - Disturbance in attention [Unknown]
  - Feelings of worthlessness [Unknown]
  - Alcohol use [Unknown]
  - Anhedonia [Unknown]
  - Dyskinesia [Unknown]
  - Weight increased [Unknown]
  - Major depression [Unknown]
  - Generalised anxiety disorder [Unknown]
  - Borderline personality disorder [Unknown]
  - Asthenia [Unknown]
  - Treatment noncompliance [Unknown]
